FAERS Safety Report 26052426 (Version 1)
Quarter: 2025Q4

REPORT INFORMATION
  Report Type: Spontaneous
  Country: TH (occurrence: TH)
  Receive Date: 20251117
  Receipt Date: 20251117
  Transmission Date: 20260118
  Serious: Yes (Life-Threatening)
  Sender: MACLEODS
  Company Number: TH-MLMSERVICE-20251030-PI692693-00201-1

PATIENT

DRUGS (2)
  1. LIDOCAINE [Suspect]
     Active Substance: LIDOCAINE
     Indication: Product used for unknown indication
     Dosage: TEST DOSE OF 2% LIDOCAINE WITH ADRENALINE AT 1:200,000, 3 ML
     Route: 065
  2. EPINEPHRINE [Suspect]
     Active Substance: EPINEPHRINE
     Indication: Product used for unknown indication
     Dosage: TEST DOSE OF 2% LIDOCAINE WITH ADRENALINE AT 1:200,000, 3 ML
     Route: 065

REACTIONS (5)
  - Subarachnoid haemorrhage [Unknown]
  - Anaesthetic complication [Unknown]
  - Respiratory distress [Recovered/Resolved]
  - Hypoaesthesia [Recovered/Resolved]
  - Loss of consciousness [Recovered/Resolved]
